FAERS Safety Report 9980302 (Version 2)
Quarter: 2014Q1

REPORT INFORMATION
  Report Type: Spontaneous
  Country: FR (occurrence: None)
  Receive Date: 20140305
  Receipt Date: 20140331
  Transmission Date: 20141002
  Serious: Yes (Life-Threatening, Hospitalization, Other)
  Sender: FDA-Public Use
  Company Number: AUR-APL-2014-02005

PATIENT
  Age: 63 Year
  Sex: Male

DRUGS (7)
  1. METFORMIN (METFORMIN) [Suspect]
     Indication: TYPE 2 DIABETES MELLITUS
     Dosage: 1500 MG (500 MG, 3 IN 1 D)
     Route: 048
  2. ATENOLOL (ATENOLOL) [Suspect]
     Indication: PRODUCT USED FOR UNKNOWN INDICATION
     Dosage: 100 MG, 1 D
     Route: 048
  3. AMAREL (GLIMEPIRIDE) [Suspect]
     Indication: TYPE 2 DIABETES MELLITUS
     Dosage: 4 MG, 1 D
     Route: 048
     Dates: start: 20131114, end: 20131124
  4. ONGLYZA (SAXAGLIPTIN HYDROCHLORIDE) [Suspect]
     Indication: TYPE 2 DIABETES MELLITUS
     Dosage: 5 MG, 1 D
     Route: 048
     Dates: start: 20131114, end: 20131124
  5. OFLOCET (OFLOXACIN) [Suspect]
     Indication: PROSTATITIS
     Dosage: 400 MG (200 MG, 2 IN 1 D)
     Dates: start: 20131115, end: 20131201
  6. INEXIUM (ESOMEPRAZOLE MAGNESIUM) (ESOMEPRAZOLE MAGNESIUM) [Concomitant]
  7. LIPANTHYL (FENOFIBRATE) [Concomitant]

REACTIONS (9)
  - Hypoglycaemic coma [None]
  - Drug dispensing error [None]
  - Tongue biting [None]
  - Metabolic encephalopathy [None]
  - Apallic syndrome [None]
  - Urinary incontinence [None]
  - Agitation [None]
  - Accidental overdose [None]
  - Encephalitis [None]
